FAERS Safety Report 5885528-X (Version None)
Quarter: 2008Q3

REPORT INFORMATION
  Report Type: 
  Country: None (occurrence: None)
  Receive Date: 20080915
  Receipt Date: 20080915
  Transmission Date: 20090109
  Serious: No
  Sender: FDA-Public Use
  Company Number: None

PATIENT

DRUGS (2)
  1. SYMBICORT [Suspect]
     Dosage: INHALATION SPRAY
  2. SIMCOR [Suspect]
     Dosage: TABLET, EXTENDED RELEASE

REACTIONS (3)
  - DRUG PRESCRIBING ERROR [None]
  - INTERCEPTED DRUG DISPENSING ERROR [None]
  - MEDICATION ERROR [None]
